FAERS Safety Report 25882371 (Version 2)
Quarter: 2025Q4

REPORT INFORMATION
  Report Type: Spontaneous
  Country: US (occurrence: US)
  Receive Date: 20251006
  Receipt Date: 20251009
  Transmission Date: 20260117
  Serious: No
  Sender: SANOFI AVENTIS
  Company Number: US-SANOFI-02671362

PATIENT
  Age: 60 Year
  Sex: Female

DRUGS (2)
  1. TOUJEO [Suspect]
     Active Substance: INSULIN GLARGINE
     Indication: Type 2 diabetes mellitus
     Dosage: 35 U, QD
  2. TOUJEO [Suspect]
     Active Substance: INSULIN GLARGINE

REACTIONS (4)
  - Injection site pain [Unknown]
  - Device use issue [Unknown]
  - Weight decreased [Unknown]
  - Product storage error [Unknown]
